FAERS Safety Report 21874687 (Version 1)
Quarter: 2023Q1

REPORT INFORMATION
  Report Type: Report from Study
  Country: US (occurrence: None)
  Receive Date: 20230117
  Receipt Date: 20230117
  Transmission Date: 20230418
  Serious: Yes (Death)
  Sender: FDA-Public Use
  Company Number: 2023A009653

PATIENT
  Sex: Male

DRUGS (2)
  1. OLAPARIB [Suspect]
     Active Substance: OLAPARIB
     Indication: Hormone-refractory prostate cancer
     Route: 048
  2. CEDIRANIB [Suspect]
     Active Substance: CEDIRANIB
     Indication: Hormone-refractory prostate cancer
     Route: 048

REACTIONS (1)
  - Haemorrhage intracranial [Fatal]
